FAERS Safety Report 5094490-1 (Version None)
Quarter: 2006Q3

REPORT INFORMATION
  Report Type: 
  Country: None (occurrence: None)
  Receive Date: 20060830
  Receipt Date: 20060811
  Transmission Date: 20061208
  Serious: Yes (Life-Threatening, Other)
  Sender: FDA-Public Use
  Company Number: JP200608001124

PATIENT
  Age: 73 Year
  Sex: Male

DRUGS (2)
  1. GEMZAR [Suspect]
     Indication: NON-SMALL CELL LUNG CANCER
     Dosage: 1644 MG, INTRAVENOUS
     Route: 042
     Dates: start: 20060731, end: 20060731
  2. DEXAMETHASONE [Concomitant]

REACTIONS (2)
  - CEREBRAL INFARCTION [None]
  - TUMOUR LYSIS SYNDROME [None]
